FAERS Safety Report 16344222 (Version 1)
Quarter: 2019Q2

REPORT INFORMATION
  Report Type: Spontaneous
  Country: GB (occurrence: GB)
  Receive Date: 20190522
  Receipt Date: 20190522
  Transmission Date: 20190711
  Serious: Yes (Other)
  Sender: FDA-Public Use
  Company Number: GB-PFIZER INC-2019211397

PATIENT
  Age: 58 Year
  Sex: Male

DRUGS (3)
  1. METHOTREXATE SODIUM. [Suspect]
     Active Substance: METHOTREXATE SODIUM
  2. HUMIRA [Suspect]
     Active Substance: ADALIMUMAB
     Indication: RHEUMATOID ARTHRITIS
     Route: 058
  3. LEFLUNOMIDE. [Suspect]
     Active Substance: LEFLUNOMIDE
     Dates: start: 2000

REACTIONS (11)
  - Rash [Unknown]
  - Facial paresis [Unknown]
  - Eyelid ptosis [Unknown]
  - Rheumatoid arthritis [Unknown]
  - Arteriosclerosis [Unknown]
  - Neck pain [Unknown]
  - Extensor plantar response [Unknown]
  - Nystagmus [Unknown]
  - Horner^s syndrome [Unknown]
  - Lacunar infarction [Unknown]
  - Musculoskeletal pain [Unknown]

NARRATIVE: CASE EVENT DATE: 1996
